FAERS Safety Report 13919664 (Version 1)
Quarter: 2017Q3

REPORT INFORMATION
  Report Type: Spontaneous
  Country: US (occurrence: None)
  Receive Date: 20170829
  Receipt Date: 20170829
  Transmission Date: 20171127
  Serious: No
  Sender: FDA-Public Use
  Company Number: None

PATIENT
  Age: 37 Year
  Sex: Female

DRUGS (1)
  1. CYCLOSPORINE CAP 25MG [Suspect]
     Active Substance: CYCLOSPORINE

REACTIONS (3)
  - Unresponsive to stimuli [None]
  - Blood creatinine abnormal [None]
  - Hirsutism [None]

NARRATIVE: CASE EVENT DATE: 20170828
